FAERS Safety Report 18565922 (Version 2)
Quarter: 2020Q4

REPORT INFORMATION
  Report Type: Spontaneous
  Country: RU (occurrence: RU)
  Receive Date: 20201201
  Receipt Date: 20201216
  Transmission Date: 20210114
  Serious: Yes (Death, Life-Threatening)
  Sender: FDA-Public Use
  Company Number: RU-PFIZER INC-2020451801

PATIENT
  Age: 72 Year
  Sex: Male
  Weight: 96 kg

DRUGS (3)
  1. KALETRA [Concomitant]
     Active Substance: LOPINAVIR\RITONAVIR
     Indication: COVID-19
     Dosage: 400/100 MG, 2X/DAY
     Dates: start: 20200516, end: 20200526
  2. TOFACITINIB CITRATE [Suspect]
     Active Substance: TOFACITINIB CITRATE
     Indication: COVID-19 PNEUMONIA
     Dosage: 10 MG, 2X/DAY
     Route: 048
     Dates: start: 20200518, end: 20200526
  3. TOFACITINIB CITRATE [Suspect]
     Active Substance: TOFACITINIB CITRATE
     Indication: COVID-19

REACTIONS (4)
  - Off label use [Fatal]
  - Drug ineffective for unapproved indication [Fatal]
  - Acute respiratory distress syndrome [Fatal]
  - Haemorrhagic pneumonia [Fatal]

NARRATIVE: CASE EVENT DATE: 20200518
